FAERS Safety Report 11993292 (Version 3)
Quarter: 2016Q1

REPORT INFORMATION
  Report Type: Spontaneous
  Country: FR (occurrence: FR)
  Receive Date: 20160203
  Receipt Date: 20160209
  Transmission Date: 20160526
  Serious: Yes (Other)
  Sender: FDA-Public Use
  Company Number: PHHY2016FR013245

PATIENT
  Sex: Female

DRUGS (1)
  1. TAREG [Suspect]
     Active Substance: VALSARTAN
     Indication: PRODUCT USED FOR UNKNOWN INDICATION
     Dosage: 80 MG, ONCE/SINGLE
     Route: 065
     Dates: start: 20160126, end: 20160126

REACTIONS (6)
  - Pharyngeal paraesthesia [Unknown]
  - Angioedema [Unknown]
  - Pharyngeal oedema [Recovered/Resolved]
  - Peripheral swelling [Unknown]
  - Lip swelling [Unknown]
  - Erythema [Recovered/Resolved]

NARRATIVE: CASE EVENT DATE: 20160126
